FAERS Safety Report 5537844-9 (Version None)
Quarter: 2007Q4

REPORT INFORMATION
  Report Type: 
  Country: None (occurrence: None)
  Receive Date: 20071207
  Receipt Date: 20071127
  Transmission Date: 20080405
  Serious: Yes (Other)
  Sender: FDA-Public Use
  Company Number: AU-PFIZER INC-2007092338

PATIENT
  Sex: Female

DRUGS (3)
  1. CADUET [Suspect]
     Dosage: TEXT:5/20 MG-FREQ:DAILY
     Route: 048
  2. LIPITOR [Suspect]
  3. AVAPRO [Concomitant]
     Dosage: DAILY DOSE:300MG-FREQ:DAILY
     Route: 048

REACTIONS (3)
  - BLINDNESS [None]
  - FATIGUE [None]
  - VISION BLURRED [None]
